FAERS Safety Report 8310279-1 (Version None)
Quarter: 2012Q2

REPORT INFORMATION
  Report Type: 
  Country: None (occurrence: None)
  Receive Date: 20120425
  Receipt Date: 20120417
  Transmission Date: 20120825
  Serious: Yes (Hospitalization, Other)
  Sender: FDA-Public Use
  Company Number: US-BAYER-2011-086476

PATIENT
  Age: 24 Year
  Sex: Female
  Weight: 80 kg

DRUGS (5)
  1. TRIAMCINOLONE [Concomitant]
     Dosage: 0.1 %, UNK
     Dates: start: 20091015
  2. ACYCLOVIR [Concomitant]
     Dosage: 800 MG, BID
     Route: 048
     Dates: start: 20091112
  3. AMLACTIN [Concomitant]
     Dosage: 12 %, UNK
     Dates: start: 20091008
  4. YAZ [Suspect]
     Dosage: UNK
     Dates: start: 20080101, end: 20090901
  5. BETAMETH DIPROPIONATE AUGMENTED [Concomitant]
     Dosage: 0.05 %, UNK
     Dates: start: 20091010

REACTIONS (6)
  - CHOLECYSTITIS CHRONIC [None]
  - MENTAL DISORDER [None]
  - INJURY [None]
  - FEAR OF DISEASE [None]
  - GALLBLADDER DISORDER [None]
  - PAIN [None]
